FAERS Safety Report 8357435 (Version 2)
Quarter: 2013Q2

REPORT INFORMATION
  Report Type: Spontaneous
  Country: US (occurrence: None)
  Receive Date: 20120118
  Receipt Date: 20120817
  Transmission Date: 20140414
  Serious: Yes (Hospitalization, Other)
  Sender: FDA-Public Use
  Company Number: ADR-2011-11843

PATIENT
  Sex: Female

DRUGS (2)
  1. LIORESAL [Suspect]
     Indication: MUSCLE SPASTICITY
     Dosage: SEE B5
  2. LIORESAL [Suspect]
     Indication: CEREBRAL PALSY
     Dosage: SEE B5

REACTIONS (31)
  - DRUG WITHDRAWAL SYNDROME [None]
  - DEVICE FAILURE [None]
  - AGGRESSION [None]
  - INTENTIONAL SELF-INJURY [None]
  - RESTLESSNESS [None]
  - AGITATION [None]
  - HALLUCINATIONS, MIXED [None]
  - CONFUSIONAL STATE [None]
  - DISINHIBITION [None]
  - SLEEP DISORDER [None]
  - CHANGE OF BOWEL HABIT [None]
  - POLLAKIURIA [None]
  - HEADACHE [None]
  - Blood creatine phosphokinase increased [None]
  - Blood pressure increased [None]
  - Constipation [None]
  - Discomfort [None]
  - Hypertonia [None]
  - Implant site swelling [None]
  - Infusion site fibrosis [None]
  - Lethargy [None]
  - Mental status changes [None]
  - Mood swings [None]
  - Muscle tightness [None]
  - Muscular weakness [None]
  - Musculoskeletal stiffness [None]
  - Psychotic disorder [None]
  - Rhabdomyolysis [None]
  - Sedation [None]
  - Self injurious behaviour [None]
  - Therapeutic response decreased [None]
